FAERS Safety Report 25028601 (Version 1)
Quarter: 2025Q1

REPORT INFORMATION
  Report Type: Report from Study
  Country: ES (occurrence: ES)
  Receive Date: 20250302
  Receipt Date: 20250302
  Transmission Date: 20250408
  Serious: Yes (Other)
  Sender: AUROBINDO
  Company Number: ES-MLMSERVICE-20250205-PI396317-00082-2

PATIENT
  Age: 5 Month
  Sex: Female

DRUGS (10)
  1. CARBOPLATIN [Suspect]
     Active Substance: CARBOPLATIN
     Indication: Congenital retinoblastoma
     Dosage: 500 MILLIGRAM/SQ. METER, ONCE A DAY [ON DAY 01; UNDETERMINED NUMBER OF CYCLES]
     Route: 065
  2. CISPLATIN [Suspect]
     Active Substance: CISPLATIN
     Indication: Congenital retinoblastoma
     Route: 065
  3. SARGRAMOSTIM [Suspect]
     Active Substance: SARGRAMOSTIM
     Indication: Product used for unknown indication
     Route: 058
  4. NAXITAMAB [Suspect]
     Active Substance: NAXITAMAB
     Indication: Product used for unknown indication
     Route: 042
  5. ETOPOSIDE [Concomitant]
     Active Substance: ETOPOSIDE
     Indication: Congenital retinoblastoma
     Dosage: 100 MILLIGRAM/SQ. METER, ONCE A DAY [DAY 1-3; UNDETERMINED NUMBER OF CYCLES]
     Route: 065
  6. ETOPOSIDE [Concomitant]
     Active Substance: ETOPOSIDE
     Indication: Autologous haematopoietic stem cell transplant
     Dosage: 50 MG/M2, ONCE A DAY
     Route: 042
  7. VINCRISTINE [Concomitant]
     Active Substance: VINCRISTINE
     Indication: Congenital retinoblastoma
     Dosage: 1.5 MILLIGRAM/SQ. METER, ONCE A DAY [D1; UNDETERMINED NUMBER OF CYCLES.]
     Route: 042
  8. TOPOTECAN [Concomitant]
     Active Substance: TOPOTECAN HYDROCHLORIDE
     Indication: Congenital retinoblastoma
     Route: 037
  9. THIOTEPA [Concomitant]
     Active Substance: THIOTEPA
     Indication: Congenital retinoblastoma
     Dosage: 300 MG/M2, ONCE A DAY
     Route: 042
  10. THIOTEPA [Concomitant]
     Active Substance: THIOTEPA
     Indication: Autologous haematopoietic stem cell transplant

REACTIONS (5)
  - Drug hypersensitivity [Unknown]
  - Pain [Unknown]
  - Hypotension [Unknown]
  - Urticaria [Unknown]
  - Deafness [Unknown]
